FAERS Safety Report 14943836 (Version 1)
Quarter: 2020Q3

REPORT INFORMATION
  Report Type: Report from Study
  Country: US (occurrence: US)
  Receive Date: 20180528
  Receipt Date: 20180528
  Transmission Date: 20201104
  Serious: Yes (Death, Hospitalization)
  Sender: FDA-Public Use
  Company Number: US-ASTRAZENECA-2018SE69508

PATIENT
  Age: 667 Month
  Sex: Female
  Weight: 35 kg

DRUGS (16)
  1. FERROUS SULFATE. [Concomitant]
     Active Substance: FERROUS SULFATE
  2. DRONABINOL. [Concomitant]
     Active Substance: DRONABINOL
  3. MEDI4736 [Suspect]
     Active Substance: DURVALUMAB
     Indication: NON-SMALL CELL LUNG CANCER
     Dosage: 1500 MG IV OVER 1 HOUR ON DAY 1
     Route: 042
     Dates: start: 20180226
  4. TREMELIMUMAB. [Suspect]
     Active Substance: TREMELIMUMAB
     Indication: NON-SMALL CELL LUNG CANCER
     Dosage: 75 MG IV OVER 1 HOUR ON DAY 1
     Route: 042
     Dates: start: 20180226
  5. DOCUSATE SODIUM. [Concomitant]
     Active Substance: DOCUSATE SODIUM
  6. SILVER SULFADIAZINE. [Concomitant]
     Active Substance: SILVER SULFADIAZINE
  7. APIXABAN [Concomitant]
     Active Substance: APIXABAN
  8. AMIODARONE [Concomitant]
     Active Substance: AMIODARONE
  9. GABAPENTIN. [Concomitant]
     Active Substance: GABAPENTIN
  10. ONDANSETRON [Concomitant]
     Active Substance: ONDANSETRON
  11. SENNA [Concomitant]
     Active Substance: SENNA LEAF\SENNOSIDES\SENNOSIDES A AND B
  12. ALBUTEROL. [Concomitant]
     Active Substance: ALBUTEROL
  13. NICOTINE. [Concomitant]
     Active Substance: NICOTINE
  14. ASCORBIC ACID. [Concomitant]
     Active Substance: ASCORBIC ACID
  15. OXYCODONE [Concomitant]
     Active Substance: OXYCODONE
  16. BUDESONIDE?FORMOTEROL [Concomitant]
     Active Substance: BUDESONIDE\FORMOTEROL

REACTIONS (1)
  - Respiratory failure [Fatal]

NARRATIVE: CASE EVENT DATE: 20180417
